FAERS Safety Report 6890320-3 (Version None)
Quarter: 2010Q3

REPORT INFORMATION
  Report Type: 
  Country: None (occurrence: None)
  Receive Date: 20100730
  Receipt Date: 20081010
  Transmission Date: 20110219
  Serious: No
  Sender: FDA-Public Use
  Company Number: US-PFIZER INC-2008044903

PATIENT
  Sex: Female
  Weight: 49.9 kg

DRUGS (1)
  1. DOXYCYCLINE [Suspect]
     Indication: LYME DISEASE
     Dates: start: 20080519

REACTIONS (4)
  - CHILLS [None]
  - HEADACHE [None]
  - LYME DISEASE [None]
  - PYREXIA [None]
